FAERS Safety Report 8861111 (Version 1)
Quarter: 2012Q4

REPORT INFORMATION
  Report Type: 
  Country: US (occurrence: US)
  Receive Date: 20121025
  Receipt Date: 20121025
  Transmission Date: 20130627
  Serious: No
  Sender: FDA-Public Use
  Company Number: US-AMGEN-USASP2012012468

PATIENT
  Age: 47 Year
  Sex: Male

DRUGS (8)
  1. ENBREL [Suspect]
     Indication: PRODUCT USED FOR UNKNOWN INDICATION
     Dosage: 50 mg, qwk
  2. XANAX [Concomitant]
     Dosage: 0.25 mg, UNK
  3. HYDROCODONE/APAP [Concomitant]
  4. LOVAZA [Concomitant]
     Dosage: 1 mg, UNK
  5. PRILOSEC                           /00661201/ [Concomitant]
     Dosage: 10 mg, UNK
  6. IBUPROFEN [Concomitant]
     Dosage: 200 mg, UNK
  7. FISH OIL [Concomitant]
  8. TRIPLEX                            /00055401/ [Concomitant]

REACTIONS (1)
  - Lower respiratory tract infection [Unknown]
